FAERS Safety Report 17459792 (Version 4)
Quarter: 2020Q2

REPORT INFORMATION
  Report Type: Spontaneous
  Country: PL (occurrence: PL)
  Receive Date: 20200226
  Receipt Date: 20200627
  Transmission Date: 20200713
  Serious: Yes (Hospitalization, Other)
  Sender: FDA-Public Use
  Company Number: NVSC2020PL051418

PATIENT
  Age: 58 Year
  Sex: Female
  Weight: 58 kg

DRUGS (16)
  1. ACETYLSALICYLIC ACID [Suspect]
     Active Substance: ASPIRIN
     Dosage: 150 MILLIGRAM, QD
     Route: 065
  2. ALPRAZOLAM. [Suspect]
     Active Substance: ALPRAZOLAM
     Indication: ANXIETY DISORDER
     Dosage: UNK, PERIODIC USE
     Route: 048
  3. ALPRAZOLAM. [Suspect]
     Active Substance: ALPRAZOLAM
     Indication: ANXIETY
  4. HYDROXYZINE [Suspect]
     Active Substance: HYDROXYZINE HYDROCHLORIDE
     Indication: ANXIETY
     Dosage: UNK, PERIODIC USE
     Route: 048
  5. LERCANIDIPINE [Suspect]
     Active Substance: LERCANIDIPINE
     Indication: PRODUCT USED FOR UNKNOWN INDICATION
     Dosage: UNK
     Route: 065
  6. ATORVASTATIN [Suspect]
     Active Substance: ATORVASTATIN
     Indication: HYPERCHOLESTEROLAEMIA
     Dosage: 40 MG, QD
     Route: 048
  7. ZOFENOPRIL [Suspect]
     Active Substance: ZOFENOPRIL
     Indication: PRODUCT USED FOR UNKNOWN INDICATION
     Dosage: UNK
     Route: 065
  8. SERTRALINE [Suspect]
     Active Substance: SERTRALINE HYDROCHLORIDE
     Dosage: 100 MG, QD
     Route: 048
  9. SERTRALINE [Suspect]
     Active Substance: SERTRALINE HYDROCHLORIDE
     Dosage: 50 MILLIGRAM, QD
     Route: 065
  10. AMLODIPINE BESILATE [Suspect]
     Active Substance: AMLODIPINE BESYLATE
     Indication: PRODUCT USED FOR UNKNOWN INDICATION
     Dosage: UNK
     Route: 065
  11. AMLODIPINE [Suspect]
     Active Substance: AMLODIPINE BESYLATE
     Indication: HYPERTENSION
     Dosage: 10 MG, QD
     Route: 065
  12. ATORVASTATIN [Suspect]
     Active Substance: ATORVASTATIN
     Dosage: 40 MILLIGRAM, QD
     Route: 065
  13. HYDROXYZINE [Suspect]
     Active Substance: HYDROXYZINE HYDROCHLORIDE
     Indication: ANXIETY DISORDER
     Dosage: UNK
     Route: 065
  14. ACETYLSALICYLIC ACID [Suspect]
     Active Substance: ASPIRIN
     Indication: PRODUCT USED FOR UNKNOWN INDICATION
     Dosage: 150 MG, QD
     Route: 048
  15. SERTRALINE [Suspect]
     Active Substance: SERTRALINE HYDROCHLORIDE
     Indication: PANIC DISORDER
     Dosage: 50 MG, QD
     Route: 048
  16. PERINDOPRIL [Suspect]
     Active Substance: PERINDOPRIL
     Indication: HYPERTENSION
     Dosage: 10 MG, QD
     Route: 065

REACTIONS (12)
  - Hallucination, olfactory [Recovered/Resolved]
  - Hallucination [Recovered/Resolved]
  - Hypophagia [Unknown]
  - Hallucination, gustatory [Recovered/Resolved]
  - Dysgeusia [Recovered/Resolved]
  - Food refusal [Recovered/Resolved]
  - Dehydration [Recovered/Resolved]
  - Eating disorder [Unknown]
  - Breath odour [Recovered/Resolved]
  - Drug ineffective [Unknown]
  - Weight decreased [Recovered/Resolved]
  - Fluid intake reduced [Unknown]

NARRATIVE: CASE EVENT DATE: 2019
